FAERS Safety Report 8825764 (Version 4)
Quarter: 2013Q4

REPORT INFORMATION
  Report Type: Spontaneous
  Country: US (occurrence: US)
  Receive Date: 20121004
  Receipt Date: 20131230
  Transmission Date: 20140711
  Serious: Yes (Death, Hospitalization, Other)
  Sender: FDA-Public Use
  Company Number: US-009507513-1210USA002338

PATIENT
  Sex: Female
  Weight: 99.59 kg

DRUGS (1)
  1. NUVARING [Suspect]
     Indication: CONTRACEPTION
     Dosage: UNK
     Route: 067
     Dates: start: 2009, end: 20101008

REACTIONS (18)
  - Pulmonary embolism [Fatal]
  - Cough [Unknown]
  - Pneumonia [Unknown]
  - Nephrolithiasis [Unknown]
  - Drug ineffective [Unknown]
  - Herpes simplex [Unknown]
  - Myalgia [Unknown]
  - Migraine [Unknown]
  - Insomnia [Unknown]
  - Heparin-induced thrombocytopenia [Unknown]
  - Pleural effusion [Unknown]
  - Haemorrhagic anaemia [Unknown]
  - Packed red blood cell transfusion [Unknown]
  - Fall [Unknown]
  - Lethargy [Unknown]
  - Cardiac arrest [Not Recovered/Not Resolved]
  - Sinus arrhythmia [Unknown]
  - Haemoptysis [Unknown]
